FAERS Safety Report 12778249 (Version 1)
Quarter: 2016Q3

REPORT INFORMATION
  Report Type: Spontaneous
  Country: US (occurrence: US)
  Receive Date: 20160925
  Receipt Date: 20160925
  Transmission Date: 20161109
  Serious: Yes (Death, Congenital Anomaly)
  Sender: FDA-Public Use
  Company Number: GXBR2016US002955

PATIENT
  Sex: Male

DRUGS (1)
  1. ONDANSETRON [Suspect]
     Active Substance: ONDANSETRON
     Indication: PRODUCT USED FOR UNKNOWN INDICATION
     Dosage: MATERNAL DOSE: 8 MG, UNK
     Route: 064
     Dates: start: 20140218

REACTIONS (9)
  - Ventricular hypoplasia [Unknown]
  - Ventricular septal defect [Unknown]
  - Cleft lip [Unknown]
  - Double outlet right ventricle [Unknown]
  - Cleft palate [Unknown]
  - Foetal exposure during pregnancy [Unknown]
  - Death [Fatal]
  - Congenital cardiovascular anomaly [Unknown]
  - Mitral valve hypoplasia [Unknown]
